FAERS Safety Report 7538756-1 (Version None)
Quarter: 2011Q2

REPORT INFORMATION
  Report Type: 
  Country: None (occurrence: None)
  Receive Date: 20110610
  Receipt Date: 20110607
  Transmission Date: 20111010
  Serious: No
  Sender: FDA-Public Use
  Company Number: US-PFIZER INC-2011124847

PATIENT
  Sex: Female

DRUGS (2)
  1. EFFEXOR XR [Suspect]
     Dosage: UNK
  2. VENLAFAXINE HCL [Suspect]
     Dosage: UNK
     Dates: start: 20100901

REACTIONS (1)
  - MEDICATION RESIDUE [None]
